FAERS Safety Report 11448525 (Version 2)
Quarter: 2015Q4

REPORT INFORMATION
  Report Type: Report from Study
  Country: ES (occurrence: ES)
  Receive Date: 20150902
  Receipt Date: 20151126
  Transmission Date: 20160304
  Serious: Yes (Other)
  Sender: FDA-Public Use
  Company Number: ES-AMGEN-ESPSL2015087849

PATIENT
  Age: 55 Year
  Sex: Female

DRUGS (3)
  1. EUTIROX [Concomitant]
     Active Substance: LEVOTHYROXINE SODIUM
  2. PROLIA [Suspect]
     Active Substance: DENOSUMAB
     Indication: OSTEOPOROSIS
     Dosage: 60 MG, Q6MO
     Route: 058
     Dates: start: 20150611
  3. CALCIUM [Concomitant]
     Active Substance: CALCIUM
     Route: 048

REACTIONS (21)
  - Pain in jaw [Not Recovered/Not Resolved]
  - Tooth infection [Not Recovered/Not Resolved]
  - Stomatitis [Not Recovered/Not Resolved]
  - Dermatitis [Not Recovered/Not Resolved]
  - Tooth abscess [Not Recovered/Not Resolved]
  - Loose tooth [Unknown]
  - Oral pain [Not Recovered/Not Resolved]
  - Furuncle [Not Recovered/Not Resolved]
  - Oral herpes [Unknown]
  - Acne [Recovered/Resolved]
  - Dental caries [Unknown]
  - Oral mucosal blistering [Not Recovered/Not Resolved]
  - Osteopenia [Unknown]
  - Constipation [Not Recovered/Not Resolved]
  - Mastication disorder [Unknown]
  - Urinary tract infection [Recovered/Resolved]
  - Herpes virus infection [Recovered/Resolved]
  - Urticaria [Recovered/Resolved]
  - Musculoskeletal pain [Not Recovered/Not Resolved]
  - Scar [Unknown]
  - Arthralgia [Not Recovered/Not Resolved]

NARRATIVE: CASE EVENT DATE: 2015
